FAERS Safety Report 23936211 (Version 1)
Quarter: 2024Q2

REPORT INFORMATION
  Report Type: Spontaneous
  Country: FR (occurrence: FR)
  Receive Date: 20240604
  Receipt Date: 20240604
  Transmission Date: 20240715
  Serious: Yes (Death)
  Sender: FDA-Public Use
  Company Number: None

PATIENT
  Age: 81 Year
  Sex: Female
  Weight: 80 kg

DRUGS (18)
  1. CLOPIDOGREL [Interacting]
     Active Substance: CLOPIDOGREL BISULFATE
     Indication: Prophylaxis
     Dates: end: 20240429
  2. FLUCONAZOLE [Interacting]
     Active Substance: FLUCONAZOLE
     Indication: Erythema
     Dates: start: 20240408, end: 20240430
  3. PAROXETINE [Interacting]
     Active Substance: PAROXETINE
     Indication: Mixed anxiety and depressive disorder
     Dates: end: 20240430
  4. COUMADIN [Interacting]
     Active Substance: WARFARIN SODIUM
     Indication: Atrial fibrillation
     Dosage: STRENGTH: 2 MG
     Dates: end: 20240429
  5. DAFLON [Concomitant]
     Dosage: STRENGTH: 500 MG
     Dates: end: 20240430
  6. LEVOTHYROXINE [Concomitant]
     Active Substance: LEVOTHYROXINE\LEVOTHYROXINE SODIUM
     Dosage: STRENGTH: 50 MCG
     Dates: end: 20240430
  7. DESLORATADINE [Concomitant]
     Active Substance: DESLORATADINE
     Dates: end: 20240430
  8. LANSOPRAZOLE [Concomitant]
     Active Substance: LANSOPRAZOLE
     Dates: end: 20240430
  9. Ferograd Vitamin C [Concomitant]
     Dates: end: 20240430
  10. ENALAPRIL [Concomitant]
     Active Substance: ENALAPRIL
     Dates: end: 20240430
  11. METEOSPASMYL [Concomitant]
     Dates: end: 20240430
  12. CHOLECALCIFEROL [Concomitant]
     Active Substance: CHOLECALCIFEROL
     Dates: end: 20240430
  13. FOSFOMYCIN [Concomitant]
     Active Substance: FOSFOMYCIN
     Dates: end: 20240430
  14. MOVICOL [Concomitant]
     Active Substance: POLYETHYLENE GLYCOL 3350\POTASSIUM CHLORIDE\SODIUM BICARBONATE\SODIUM CHLORIDE
     Dates: end: 20240430
  15. DILTIAZEM [Concomitant]
     Active Substance: DILTIAZEM
     Dates: end: 20240430
  16. ACETAMINOPHEN [Concomitant]
     Active Substance: ACETAMINOPHEN
     Dates: end: 20240430
  17. FESOTERODINE [Concomitant]
     Active Substance: FESOTERODINE
     Dates: end: 20240430
  18. ALPRAZOLAM [Concomitant]
     Active Substance: ALPRAZOLAM
     Dates: end: 20240430

REACTIONS (2)
  - Haemorrhagic stroke [Fatal]
  - Drug interaction [Fatal]

NARRATIVE: CASE EVENT DATE: 20240416
